FAERS Safety Report 10513950 (Version 1)
Quarter: 2014Q4

REPORT INFORMATION
  Report Type: Spontaneous
  Country: US (occurrence: US)
  Receive Date: 20141013
  Receipt Date: 20141013
  Transmission Date: 20150528
  Serious: Yes (Hospitalization)
  Sender: FDA-Public Use
  Company Number: US-ACTELION-A-NJ2014-106274

PATIENT
  Age: 75 Year
  Sex: Female

DRUGS (10)
  1. HYDROCHLOROTHIAZIDE. [Concomitant]
     Active Substance: HYDROCHLOROTHIAZIDE
  2. ALENDRONATE [Concomitant]
     Active Substance: ALENDRONATE SODIUM
  3. PREMARIN [Concomitant]
     Active Substance: ESTROGENS, CONJUGATED
  4. METOPROLOL [Concomitant]
     Active Substance: METOPROLOL
  5. SILDENAFIL. [Concomitant]
     Active Substance: SILDENAFIL
     Indication: PULMONARY ARTERIAL HYPERTENSION
  6. LISINOPRIL. [Concomitant]
     Active Substance: LISINOPRIL
  7. OPSUMIT [Suspect]
     Active Substance: MACITENTAN
     Indication: PULMONARY HYPERTENSION
     Dosage: 10 MG, QD
     Route: 048
     Dates: start: 20140326, end: 20140430
  8. FUROSEMIDE. [Concomitant]
     Active Substance: FUROSEMIDE
  9. POTASSIUM [Concomitant]
     Active Substance: POTASSIUM
  10. LEVOTHYROXINE [Concomitant]
     Active Substance: LEVOTHYROXINE

REACTIONS (1)
  - Knee arthroplasty [Recovered/Resolved]

NARRATIVE: CASE EVENT DATE: 20140908
